FAERS Safety Report 4649698-3 (Version None)
Quarter: 2005Q2

REPORT INFORMATION
  Report Type: 
  Country: None (occurrence: None)
  Receive Date: 20050502
  Receipt Date: 20050214
  Transmission Date: 20051028
  Serious: Yes (Hospitalization)
  Sender: FDA-Public Use
  Company Number: GB-BOEHRINGER INGELHEIM PHARMACEUTICALS, INC.-2005-UK-00241UK

PATIENT
  Sex: Male
  Weight: 92 kg

DRUGS (7)
  1. MICARDIS [Suspect]
     Indication: CEREBROVASCULAR ACCIDENT PROPHYLAXIS
     Route: 048
     Dates: start: 20040319, end: 20050213
  2. PLACEBO [Suspect]
     Indication: CEREBROVASCULAR ACCIDENT PROPHYLAXIS
     Route: 048
     Dates: start: 20040319
  3. CLOPIDOGREL (AGGRENOX REFERENCE) [Suspect]
     Indication: CEREBROVASCULAR ACCIDENT PROPHYLAXIS
     Route: 048
     Dates: start: 20040319
  4. FLUOXETINE [Suspect]
     Indication: DEPRESSION
     Route: 048
     Dates: start: 20050201, end: 20050213
  5. PERINDOPRIL [Suspect]
     Indication: HYPERTENSION
     Route: 048
     Dates: end: 20050213
  6. FLUOXETINE [Concomitant]
     Route: 048
     Dates: start: 20050201, end: 20050213
  7. PERINDOPRIL [Concomitant]
     Route: 048

REACTIONS (2)
  - FALL [None]
  - HYPONATRAEMIA [None]
